FAERS Safety Report 9180505 (Version 1)
Quarter: 2013Q1

REPORT INFORMATION
  Report Type: Spontaneous
  Country: US (occurrence: None)
  Receive Date: 20130320
  Receipt Date: 20130320
  Transmission Date: 20140127
  Serious: Yes (Other)
  Sender: FDA-Public Use
  Company Number: 2013P1003086

PATIENT
  Age: 29 Year
  Sex: Female

DRUGS (3)
  1. AMPHETAMINE [Suspect]
  2. PHENAZEPAM [Suspect]
  3. QUETIAPINE [Suspect]

REACTIONS (7)
  - Impaired driving ability [None]
  - Miosis [None]
  - Dysarthria [None]
  - Slow speech [None]
  - Ocular hyperaemia [None]
  - Balance disorder [None]
  - Romberg test positive [None]
